FAERS Safety Report 20786789 (Version 2)
Quarter: 2023Q2

REPORT INFORMATION
  Report Type: Report from Study
  Country: CA (occurrence: CA)
  Receive Date: 20220505
  Receipt Date: 20230512
  Transmission Date: 20230722
  Serious: Yes (Death, Hospitalization)
  Sender: FDA-Public Use
  Company Number: CA-UCBSA-2022024378

PATIENT
  Age: 80 Year
  Sex: Female

DRUGS (2)
  1. CERTOLIZUMAB PEGOL [Suspect]
     Active Substance: CERTOLIZUMAB PEGOL
     Indication: Rheumatoid arthritis
     Dosage: 400 MILLIGRAM, EV 2 WEEKS(QOW)
     Route: 058
     Dates: start: 20201024
  2. CERTOLIZUMAB PEGOL [Suspect]
     Active Substance: CERTOLIZUMAB PEGOL
     Dosage: 200 MILLIGRAM, EV 2 WEEKS(QOW)
     Route: 058

REACTIONS (7)
  - Death [Fatal]
  - Fall [Unknown]
  - Head injury [Unknown]
  - Asthenia [Unknown]
  - Delirium [Unknown]
  - Constipation [Unknown]
  - Dehydration [Unknown]

NARRATIVE: CASE EVENT DATE: 20230211
